FAERS Safety Report 9187129 (Version 2)
Quarter: 2013Q2

REPORT INFORMATION
  Report Type: Spontaneous
  Country: FR (occurrence: FR)
  Receive Date: 20130325
  Receipt Date: 20130516
  Transmission Date: 20140414
  Serious: Yes (Hospitalization)
  Sender: FDA-Public Use
  Company Number: FR-TEVA-391922ISR

PATIENT
  Age: 49 Year
  Sex: Female

DRUGS (3)
  1. VALPROATE DE SODIUM TEVA LP 500MG [Suspect]
     Indication: EPILEPSY
     Dosage: 1000 MILLIGRAM DAILY;
     Route: 048
     Dates: start: 1995, end: 201201
  2. INDAPAMIDE MYLAN [Suspect]
     Indication: HYPERTENSION
     Dosage: 1.5 MILLIGRAM DAILY;
     Route: 048
     Dates: end: 20120203
  3. ALTEIS 20MG [Suspect]
     Indication: HYPERTENSION
     Route: 048
     Dates: end: 20120111

REACTIONS (6)
  - Transaminases increased [Recovering/Resolving]
  - Gamma-glutamyltransferase increased [Recovering/Resolving]
  - Hepatocellular injury [Recovering/Resolving]
  - Bronchopneumopathy [Recovering/Resolving]
  - Aspartate aminotransferase increased [None]
  - Alanine aminotransferase increased [None]
